FAERS Safety Report 7285520-7 (Version None)
Quarter: 2011Q1

REPORT INFORMATION
  Report Type: 
  Country: None (occurrence: None)
  Receive Date: 20110121
  Receipt Date: 20070821
  Transmission Date: 20110831
  Serious: No
  Sender: FDA-Public Use
  Company Number: 142

PATIENT
  Sex: Male
  Weight: 91.6266 kg

DRUGS (4)
  1. FAZACLO ODT [Suspect]
     Indication: SCHIZOPHRENIA
     Dosage: 550 MG PO DAILY
     Route: 048
     Dates: start: 20070819
  2. ATIVAN [Concomitant]
  3. CLONIDINE [Concomitant]
  4. COGENTIN [Concomitant]

REACTIONS (2)
  - VOMITING [None]
  - NAUSEA [None]
